FAERS Safety Report 6401125-1 (Version None)
Quarter: 2009Q4

REPORT INFORMATION
  Report Type: 
  Country: None (occurrence: None)
  Receive Date: 20091015
  Receipt Date: 20091008
  Transmission Date: 20100525
  Serious: Yes (Other)
  Sender: FDA-Public Use
  Company Number: JP-JNJFOC-20080901568

PATIENT
  Age: 65 Year
  Sex: Female

DRUGS (1)
  1. ITRIZOLE [Suspect]
     Indication: ONYCHOMYCOSIS
     Dosage: THE DRUG WAS TAKEN IN PULSE THERAPY.
     Route: 048
     Dates: start: 20080821, end: 20080826

REACTIONS (3)
  - DRUG ERUPTION [None]
  - LIVER DISORDER [None]
  - PYREXIA [None]
